FAERS Safety Report 24826109 (Version 1)
Quarter: 2025Q1

REPORT INFORMATION
  Report Type: Spontaneous
  Country: CN (occurrence: CN)
  Receive Date: 20250109
  Receipt Date: 20250109
  Transmission Date: 20250408
  Serious: Yes (Life-Threatening, Other)
  Sender: PFIZER
  Company Number: CN-PFIZER INC-PV202500001026

PATIENT
  Age: 28 Year
  Sex: Male

DRUGS (3)
  1. METHYLPREDNISOLONE SODIUM SUCCINATE [Suspect]
     Active Substance: METHYLPREDNISOLONE SODIUM SUCCINATE
     Indication: Fatal familial insomnia
     Dosage: 160 MG, DAILY (5 DAYS IN TOTAL, THEN GRADUALLY REDUCE IT)
     Route: 042
     Dates: start: 2021
  2. HUMAN IMMUNOGLOBULIN G [Suspect]
     Active Substance: HUMAN IMMUNOGLOBULIN G
     Indication: Fatal familial insomnia
     Route: 042
     Dates: start: 2021
  3. ACYCLOVIR [Concomitant]
     Active Substance: ACYCLOVIR
     Indication: Fatal familial insomnia
     Dosage: 0.5 G, 3X/DAY (Q8H)
     Route: 042
     Dates: start: 2021

REACTIONS (1)
  - Drug ineffective [Unknown]

NARRATIVE: CASE EVENT DATE: 20210101
